FAERS Safety Report 6603247-9 (Version None)
Quarter: 2010Q1

REPORT INFORMATION
  Report Type: 
  Country: None (occurrence: None)
  Receive Date: 20100218
  Receipt Date: 20100208
  Transmission Date: 20100710
  Serious: Yes (Other)
  Sender: FDA-Public Use
  Company Number: 230211J10BRA

PATIENT
  Age: 46 Year
  Sex: Female

DRUGS (4)
  1. REBIF [Suspect]
     Indication: RELAPSING-REMITTING MULTIPLE SCLEROSIS
     Dosage: 22 MCG, 3 IN 1 WEEKS
     Dates: start: 20020320
  2. HYOSCINE HBR HYT [Concomitant]
  3. HIGROTON (CHLORTALIDONE) [Concomitant]
  4. CALCIUM (CALCIUM) [Concomitant]

REACTIONS (4)
  - HAEMANGIOMA OF LIVER [None]
  - HAEMORRHAGE [None]
  - URINARY TRACT INFECTION [None]
  - UTERINE LEIOMYOMA [None]
